FAERS Safety Report 4505164-7 (Version None)
Quarter: 2004Q4

REPORT INFORMATION
  Report Type: 
  Country: None (occurrence: None)
  Receive Date: 20041119
  Receipt Date: 20041112
  Transmission Date: 20050328
  Serious: No
  Sender: FDA-Public Use
  Company Number: 200413494JP

PATIENT
  Age: 66 Year
  Sex: Female

DRUGS (7)
  1. ARAVA [Suspect]
     Indication: RHEUMATOID ARTHRITIS
     Route: 048
     Dates: start: 20040624, end: 20040712
  2. RANTUDIL [Concomitant]
     Indication: RHEUMATOID ARTHRITIS
     Route: 048
  3. SELBEX [Concomitant]
     Indication: PROPHYLAXIS
     Route: 048
  4. TAGAMET [Concomitant]
     Indication: PROPHYLAXIS
     Route: 048
  5. ALFAROL [Concomitant]
     Indication: OSTEOPOROSIS
     Route: 048
  6. ALFAROL [Concomitant]
     Indication: RHEUMATOID ARTHRITIS
     Route: 048
  7. PREDNISOLONE [Concomitant]
     Indication: RHEUMATOID ARTHRITIS
     Route: 048

REACTIONS (1)
  - CEREBRAL INFARCTION [None]
